FAERS Safety Report 4939840-9 (Version None)
Quarter: 2006Q1

REPORT INFORMATION
  Report Type: 
  Country: None (occurrence: None)
  Receive Date: 20060310
  Receipt Date: 20050523
  Transmission Date: 20060701
  Serious: Yes (Death, Hospitalization)
  Sender: FDA-Public Use
  Company Number: US-MERCK-0505USA02719

PATIENT
  Age: 67 Year
  Sex: Male
  Weight: 95 kg

DRUGS (15)
  1. VIOXX [Suspect]
     Indication: ARTHRALGIA
     Route: 048
     Dates: start: 20020312, end: 20030527
  2. VIOXX [Suspect]
     Indication: RHEUMATOID ARTHRITIS
     Route: 048
     Dates: start: 20020312, end: 20030527
  3. DIGOXIN [Concomitant]
     Route: 065
  4. ASPIRIN [Concomitant]
     Route: 065
  5. LIPITOR [Concomitant]
     Route: 065
  6. ZYRTEC [Concomitant]
     Route: 065
  7. AMBIEN [Concomitant]
     Route: 065
  8. VITAMINS (UNSPECIFIED) [Concomitant]
     Route: 065
  9. VITAMIN E [Concomitant]
     Route: 065
  10. PYRIDOXINE [Concomitant]
     Route: 065
  11. SAW PALMETTO [Concomitant]
     Route: 065
  12. CHONDROITIN SULFATE SODIUM AND GLUCOSAMINE HYDROCHLORIDE [Concomitant]
     Route: 065
  13. NASACORT [Concomitant]
     Route: 055
  14. OCEAN [Concomitant]
     Route: 055
  15. IRON (UNSPECIFIED) [Concomitant]
     Route: 065

REACTIONS (19)
  - ACCIDENTAL OVERDOSE [None]
  - CONSTIPATION [None]
  - DYSPNOEA EXERTIONAL [None]
  - FATIGUE [None]
  - HYPERLIPIDAEMIA [None]
  - HYPERTENSION [None]
  - IRON DEFICIENCY ANAEMIA [None]
  - KNEE ARTHROPLASTY [None]
  - MUSCULOSKELETAL STIFFNESS [None]
  - MYALGIA [None]
  - MYOCARDIAL INFARCTION [None]
  - OEDEMA [None]
  - OEDEMA PERIPHERAL [None]
  - PROCEDURAL HYPERTENSION [None]
  - PROTEINURIA [None]
  - RHEUMATOID ARTHRITIS [None]
  - SINUS OPERATION [None]
  - SYNCOPE [None]
  - VENTRICULAR EXTRASYSTOLES [None]
